FAERS Safety Report 7031190-2 (Version None)
Quarter: 2010Q4

REPORT INFORMATION
  Report Type: 
  Country: None (occurrence: None)
  Receive Date: 20101006
  Receipt Date: 20100921
  Transmission Date: 20110411
  Serious: Yes (Other)
  Sender: FDA-Public Use
  Company Number: PHEH2006US12371

PATIENT
  Sex: Female
  Weight: 69.841 kg

DRUGS (8)
  1. AREDIA [Suspect]
     Indication: BONE DENSITY DECREASED
  2. CARBOPLATIN [Concomitant]
  3. TAXOL [Concomitant]
  4. AVASTIN [Concomitant]
  5. TAXOTERE [Concomitant]
  6. GEMCAL [Concomitant]
  7. NAVELBINE [Concomitant]
  8. BISPHOSPHONATES [Concomitant]

REACTIONS (38)
  - ANION GAP INCREASED [None]
  - ANXIETY [None]
  - ARTHRALGIA [None]
  - ATAXIA [None]
  - BACK PAIN [None]
  - BLOOD ALKALINE PHOSPHATASE INCREASED [None]
  - BLOOD GLUCOSE INCREASED [None]
  - BLOOD PRESSURE INCREASED [None]
  - BLOOD UREA INCREASED [None]
  - CEREBRAL ATROPHY [None]
  - CEREBRAL ISCHAEMIA [None]
  - CHEST PAIN [None]
  - DIABETES MELLITUS [None]
  - DIARRHOEA [None]
  - FACIAL PAIN [None]
  - FALL [None]
  - FLANK PAIN [None]
  - GAIT DISTURBANCE [None]
  - HEART RATE INCREASED [None]
  - INJURY [None]
  - MASTOID DISORDER [None]
  - MENTAL STATUS CHANGES [None]
  - METASTASES TO BONE [None]
  - METASTASES TO SPINE [None]
  - METASTATIC NEOPLASM [None]
  - MICTURITION URGENCY [None]
  - NAUSEA [None]
  - NECK PAIN [None]
  - OSTEOLYSIS [None]
  - OSTEOMYELITIS [None]
  - OSTEONECROSIS OF JAW [None]
  - PAIN [None]
  - PHYSICAL DISABILITY [None]
  - PRIMARY SEQUESTRUM [None]
  - RASH [None]
  - SHOULDER ARTHROPLASTY [None]
  - SPINAL CORD COMPRESSION [None]
  - STRESS URINARY INCONTINENCE [None]
